FAERS Safety Report 10037267 (Version 1)
Quarter: 2014Q1

REPORT INFORMATION
  Report Type: Spontaneous
  Country: AU (occurrence: None)
  Receive Date: 20140324
  Receipt Date: 20140324
  Transmission Date: 20141002
  Serious: Yes (Death)
  Sender: FDA-Public Use
  Company Number: KAD201403-000330

PATIENT
  Age: 60 Year
  Sex: 0

DRUGS (1)
  1. RIBAVIRIN [Suspect]
     Indication: RESPIRATORY SYNCYTIAL VIRUS INFECTION
     Dosage: (36 MG/KG)
     Route: 048

REACTIONS (8)
  - Respiratory failure [None]
  - Off label use [None]
  - Influenza [None]
  - Enterococcal infection [None]
  - Pneumonia [None]
  - Pathogen resistance [None]
  - Pneumonia influenzal [None]
  - Pneumonia respiratory syncytial viral [None]
